FAERS Safety Report 9541116 (Version 2)
Quarter: 2013Q4

REPORT INFORMATION
  Report Type: Spontaneous
  Country: US (occurrence: US)
  Receive Date: 20130923
  Receipt Date: 20131104
  Transmission Date: 20140711
  Serious: Yes (Hospitalization)
  Sender: FDA-Public Use
  Company Number: US-BIOGENIDEC-2013BI090431

PATIENT
  Age: 42 Year
  Sex: Female

DRUGS (17)
  1. TYSABRI [Suspect]
     Indication: MULTIPLE SCLEROSIS
     Route: 042
  2. FENTANYL [Concomitant]
  3. HYDROCODONE [Concomitant]
  4. RELAFEN [Concomitant]
  5. DILAUDID [Concomitant]
  6. LYRICA [Concomitant]
  7. PROVIGIL [Concomitant]
  8. ZANAFLEX [Concomitant]
  9. LAMICTAL [Concomitant]
  10. CYMBALTA [Concomitant]
  11. GEODON [Concomitant]
  12. TOPAMAX [Concomitant]
  13. PROAIR HFA [Concomitant]
  14. TARKA [Concomitant]
  15. HYDROCHLOROTHIAZIDE [Concomitant]
  16. VESICARE [Concomitant]
  17. DOCUSATE [Concomitant]

REACTIONS (2)
  - Skin infection [Unknown]
  - Staphylococcal infection [Unknown]
